FAERS Safety Report 9351674 (Version 7)
Quarter: 2016Q2

REPORT INFORMATION
  Report Type: Spontaneous
  Country: US (occurrence: US)
  Receive Date: 20130617
  Receipt Date: 20160526
  Transmission Date: 20160815
  Serious: Yes (Hospitalization, Other)
  Sender: FDA-Public Use
  Company Number: US-MERCK-1306USA006601

PATIENT
  Sex: Male
  Weight: 90.7 kg

DRUGS (4)
  1. FINASTERIDE. [Suspect]
     Active Substance: FINASTERIDE
     Indication: PROSTATOMEGALY
     Dosage: 5 MG, UNKNOWN
     Route: 048
     Dates: start: 20080811
  2. PROSCAR [Suspect]
     Active Substance: FINASTERIDE
     Indication: PROSTATOMEGALY
     Dosage: 5 MG, QD
     Route: 048
     Dates: start: 20051004, end: 200606
  3. FLOMAX [Concomitant]
     Active Substance: TAMSULOSIN HYDROCHLORIDE
     Indication: PRODUCT USED FOR UNKNOWN INDICATION
     Dosage: UNK, UNKNOWN
     Route: 048
     Dates: start: 1995
  4. FINASTERIDE. [Suspect]
     Active Substance: FINASTERIDE
     Indication: PROSTATOMEGALY
     Dosage: 5 MG, QD
     Route: 048
     Dates: start: 200607

REACTIONS (10)
  - Radical prostatectomy [Unknown]
  - Flatulence [Recovered/Resolved]
  - Drug ineffective [Unknown]
  - Libido decreased [Unknown]
  - Surgery [Unknown]
  - Lymphadenectomy [Unknown]
  - Stress urinary incontinence [Not Recovered/Not Resolved]
  - Erectile dysfunction [Unknown]
  - Drug ineffective [Unknown]
  - Prostate cancer [Not Recovered/Not Resolved]

NARRATIVE: CASE EVENT DATE: 20051004
